FAERS Safety Report 8605198-7 (Version None)
Quarter: 2012Q3

REPORT INFORMATION
  Report Type: 
  Country: None (occurrence: None)
  Receive Date: 20120820
  Receipt Date: 20120813
  Transmission Date: 20120928
  Serious: Yes (Death, Hospitalization, Other)
  Sender: FDA-Public Use
  Company Number: SK-ELI_LILLY_AND_COMPANY-SK201208000356

PATIENT
  Sex: Male

DRUGS (2)
  1. FORTEO [Suspect]
     Indication: OSTEOPOROSIS
     Dosage: UNK, UNKNOWN
     Route: 058
     Dates: start: 20111121, end: 20120711
  2. PREDNISONE TAB [Concomitant]
     Indication: PULMONARY FIBROSIS
     Dosage: 20 MG, UNK
     Dates: start: 20100201

REACTIONS (7)
  - MYOCARDIAL ISCHAEMIA [None]
  - HOSPITALISATION [None]
  - CARDIOPULMONARY FAILURE [None]
  - BRONCHOPNEUMONIA [None]
  - PULMONARY EMBOLISM [None]
  - HYPERTONIA [None]
  - ASTHMA [None]
